FAERS Safety Report 13945046 (Version 1)
Quarter: 2017Q3

REPORT INFORMATION
  Report Type: Spontaneous
  Country: CN (occurrence: CN)
  Receive Date: 20170907
  Receipt Date: 20170907
  Transmission Date: 20171128
  Serious: Yes (Life-Threatening, Other)
  Sender: FDA-Public Use
  Company Number: CN-BAXTER-2017BAX031459

PATIENT
  Age: 47 Year
  Sex: Female
  Weight: 55 kg

DRUGS (39)
  1. 0.9% SODIUM CHLORIDE INJECTION [Suspect]
     Active Substance: SODIUM CHLORIDE
     Dosage: DILUENT FOR DEPAKINE
     Route: 042
     Dates: start: 20170609
  2. POTASSIUM CHLORIDE. [Suspect]
     Active Substance: POTASSIUM CHLORIDE
     Indication: MINERAL SUPPLEMENTATION
     Route: 041
     Dates: start: 20170608
  3. INSULIN [Suspect]
     Active Substance: INSULIN NOS
     Indication: SUPPLEMENTATION THERAPY
     Dosage: 6 UNITS
     Route: 041
     Dates: start: 20170608
  4. SODIUM CHLORIDE. [Suspect]
     Active Substance: SODIUM CHLORIDE
     Indication: SUPPLEMENTATION THERAPY
     Route: 048
     Dates: start: 20170608
  5. 0.9% SODIUM CHLORIDE INJECTION [Suspect]
     Active Substance: SODIUM CHLORIDE
     Dosage: DILUENT FOR MIDAZOLAM
     Route: 042
     Dates: start: 20170609
  6. DEXMEDETOMIDINE. [Suspect]
     Active Substance: DEXMEDETOMIDINE
     Route: 042
     Dates: start: 20170609, end: 20170610
  7. DEPAKINE [Suspect]
     Active Substance: VALPROATE SODIUM
     Indication: EPILEPSY
     Route: 042
     Dates: start: 20170609
  8. HUMAN ALBUMIN [Suspect]
     Active Substance: ALBUMIN HUMAN
     Indication: BRAIN OEDEMA
     Route: 041
     Dates: start: 20170609, end: 20170613
  9. 0.9% SODIUM CHLORIDE INJECTION [Suspect]
     Active Substance: SODIUM CHLORIDE
     Dosage: DILUENT FOR MIDAZOLAM
     Route: 042
     Dates: start: 20170608
  10. 0.9% SODIUM CHLORIDE INJECTION [Suspect]
     Active Substance: SODIUM CHLORIDE
     Dosage: DILUENT FOR DEXMEDETOMIDINE
     Route: 042
     Dates: start: 20170609
  11. DIAZEPAM. [Suspect]
     Active Substance: DIAZEPAM
     Route: 030
     Dates: start: 20170608
  12. DEXMEDETOMIDINE. [Suspect]
     Active Substance: DEXMEDETOMIDINE
     Route: 042
     Dates: start: 20170609
  13. DEPAKINE [Suspect]
     Active Substance: VALPROATE SODIUM
     Route: 042
     Dates: start: 20170609
  14. 5% GLUCOSE  INJECTION [Suspect]
     Active Substance: DEXTROSE
     Indication: MEDICATION DILUTION
     Route: 041
     Dates: start: 20170608
  15. 0.9% SODIUM CHLORIDE INJECTION [Suspect]
     Active Substance: SODIUM CHLORIDE
     Indication: MEDICATION DILUTION
     Route: 042
     Dates: start: 20170608
  16. 0.9% SODIUM CHLORIDE INJECTION [Suspect]
     Active Substance: SODIUM CHLORIDE
     Dosage: DILUENT FOR DEXMEDETOMIDINE
     Route: 042
     Dates: start: 20170609
  17. POTASSIUM CHLORIDE. [Suspect]
     Active Substance: POTASSIUM CHLORIDE
     Route: 042
     Dates: start: 20170608
  18. RINGER^S SOLUTION [Suspect]
     Active Substance: RINGER^S SOLUTION
     Indication: MINERAL SUPPLEMENTATION
     Route: 041
     Dates: start: 20170608
  19. DIAZEPAM. [Suspect]
     Active Substance: DIAZEPAM
     Route: 042
     Dates: start: 20170608
  20. MIDAZOLAM [Suspect]
     Active Substance: MIDAZOLAM HYDROCHLORIDE
     Indication: ADVERSE EVENT
     Route: 042
     Dates: start: 20170608
  21. MIDAZOLAM [Suspect]
     Active Substance: MIDAZOLAM HYDROCHLORIDE
     Route: 042
     Dates: start: 20170609
  22. 5% GLUCOSE  INJECTION [Suspect]
     Active Substance: DEXTROSE
     Dosage: DILUENT TO DIAZEPAM
     Route: 042
     Dates: start: 20170608
  23. 0.9% SODIUM CHLORIDE INJECTION [Suspect]
     Active Substance: SODIUM CHLORIDE
     Dosage: DILUENT FOR DEXMEDETOMIDINE
     Route: 042
     Dates: start: 20170609
  24. HENGKANG ZHENGQING [Suspect]
     Active Substance: POLYETHYLENE GLYCOL 4000\POTASSIUM CHLORIDE\SODIUM BICARBONATE\SODIUM CHLORIDE\SODIUM SULFATE ANHYDROUS
     Indication: BOWEL PREPARATION
     Dosage: FORMULATION: POWDER, 2 BOXES ADDED IN PLAIN BOILED WATER 2000ML
     Route: 048
     Dates: start: 20170607, end: 20170607
  25. 0.9% SODIUM CHLORIDE INJECTION [Suspect]
     Active Substance: SODIUM CHLORIDE
     Dosage: DILUENT FOR DEPAKINE
     Route: 042
     Dates: start: 20170609
  26. 5% GLUCOSE AND 0.9% SODIUM CHLORIDE INJECTION [Suspect]
     Active Substance: DEXTROSE\SODIUM CHLORIDE
     Indication: MEDICATION DILUTION
     Route: 041
     Dates: start: 20170608
  27. POTASSIUM CHLORIDE. [Suspect]
     Active Substance: POTASSIUM CHLORIDE
     Dosage: POTASSIUM CHLORIDE ORAL LIQUID
     Route: 048
     Dates: start: 20170608
  28. POTASSIUM CHLORIDE. [Suspect]
     Active Substance: POTASSIUM CHLORIDE
     Route: 041
     Dates: start: 20170608
  29. RINGER^S SOLUTION [Suspect]
     Active Substance: RINGER^S SOLUTION
     Indication: SUPPLEMENTATION THERAPY
  30. DIAZEPAM. [Suspect]
     Active Substance: DIAZEPAM
     Indication: CONVULSIONS LOCAL
     Dosage: DIAZEPAM TABLETS
     Route: 048
     Dates: start: 20170608
  31. SODIUM CHLORIDE. [Suspect]
     Active Substance: SODIUM CHLORIDE
     Indication: SUPPLEMENTATION THERAPY
     Route: 041
     Dates: start: 20170608
  32. PROPOFOL. [Suspect]
     Active Substance: PROPOFOL
     Indication: ADVERSE EVENT
     Route: 042
     Dates: start: 20170608
  33. DEXMEDETOMIDINE. [Suspect]
     Active Substance: DEXMEDETOMIDINE
     Indication: ADVERSE EVENT
     Route: 042
     Dates: start: 20170609
  34. DEPAKINE [Suspect]
     Active Substance: VALPROATE SODIUM
     Route: 042
     Dates: start: 20170609, end: 20170610
  35. 0.9% SODIUM CHLORIDE INJECTION [Suspect]
     Active Substance: SODIUM CHLORIDE
     Dosage: DILUENT FOR DEPAKINE
     Route: 042
     Dates: start: 20170609
  36. 20% MANNITOL INJECTION [Suspect]
     Active Substance: MANNITOL
     Indication: BOWEL PREPARATION
     Route: 048
     Dates: start: 20170607, end: 20170607
  37. POTASSIUM CHLORIDE. [Suspect]
     Active Substance: POTASSIUM CHLORIDE
     Indication: SUPPLEMENTATION THERAPY
     Route: 041
     Dates: start: 20170608
  38. RINGER^S SOLUTION [Suspect]
     Active Substance: RINGER^S SOLUTION
     Indication: SUPPLEMENTATION THERAPY
     Route: 041
     Dates: start: 20170608
  39. DROPERIDOL. [Suspect]
     Active Substance: DROPERIDOL
     Indication: ADVERSE EVENT
     Route: 030
     Dates: start: 20170608

REACTIONS (15)
  - Incontinence [Recovered/Resolved]
  - Dysphoria [Unknown]
  - Muscle tightness [Recovered/Resolved]
  - Metabolic encephalopathy [Unknown]
  - Palpitations [Unknown]
  - Hypoaesthesia [Unknown]
  - Diarrhoea [Unknown]
  - Mania [Recovered/Resolved]
  - Brain oedema [Recovering/Resolving]
  - Epilepsy [Recovered/Resolved]
  - Hypotonia [Unknown]
  - Electrolyte imbalance [Recovered/Resolved]
  - Delirium [Recovered/Resolved]
  - Loss of consciousness [Recovering/Resolving]
  - Tachypnoea [Unknown]

NARRATIVE: CASE EVENT DATE: 20170607
